FAERS Safety Report 6688312-2 (Version None)
Quarter: 2010Q2

REPORT INFORMATION
  Report Type: 
  Country: None (occurrence: None)
  Receive Date: 20100420
  Receipt Date: 20100407
  Transmission Date: 20101027
  Serious: Yes (Hospitalization)
  Sender: FDA-Public Use
  Company Number: PHHY2010NL21841

PATIENT
  Sex: Female

DRUGS (5)
  1. ZOMETA [Suspect]
     Dosage: 4MG/5ML
     Dates: start: 20091215
  2. ZOMETA [Suspect]
     Dosage: 4MG/5ML
     Dates: start: 20100112
  3. ZOMETA [Suspect]
     Dosage: 4MG/5ML
     Dates: start: 20100209
  4. ZOMETA [Suspect]
     Dosage: 4MG/5ML
     Dates: start: 20100309
  5. ZOMETA [Suspect]
     Dosage: 4MG/5ML
     Dates: start: 20100407

REACTIONS (3)
  - FEEDING DISORDER [None]
  - GASTROINTESTINAL ENDOSCOPIC THERAPY [None]
  - WEIGHT DECREASED [None]
